FAERS Safety Report 21750700 (Version 1)
Quarter: 2022Q4

REPORT INFORMATION
  Report Type: Spontaneous
  Country: FR (occurrence: FR)
  Receive Date: 20221219
  Receipt Date: 20221219
  Transmission Date: 20230113
  Serious: Yes (Other)
  Sender: FDA-Public Use
  Company Number: FR-AMERICAN REGENT INC-2022003541

PATIENT

DRUGS (1)
  1. VENOFER [Suspect]
     Active Substance: IRON SUCROSE
     Indication: Product used for unknown indication
     Dosage: 66 MILLIGRAM, SINGLE
     Route: 064
     Dates: start: 20211130, end: 20211130

REACTIONS (2)
  - Tachycardia foetal [Recovered/Resolved]
  - Foetal exposure during pregnancy [Unknown]

NARRATIVE: CASE EVENT DATE: 20211130
